FAERS Safety Report 19776303 (Version 2)
Quarter: 2021Q3

REPORT INFORMATION
  Report Type: Spontaneous
  Country: JP (occurrence: JP)
  Receive Date: 20210901
  Receipt Date: 20210902
  Transmission Date: 20211014
  Serious: Yes (Life-Threatening, Hospitalization, Other)
  Sender: FDA-Public Use
  Company Number: JP-009507513-2106JPN000725J

PATIENT
  Age: 81 Year
  Sex: Male
  Weight: 72 kg

DRUGS (15)
  1. ATENOLOL. [Concomitant]
     Active Substance: ATENOLOL
     Indication: DISEASE COMPLICATION
     Dosage: 10 MILLIGRAM, QD
     Route: 048
     Dates: end: 20210610
  2. DIASTASE, TAKA;LIPASE [Concomitant]
     Indication: DISEASE COMPLICATION
     Dosage: 1.3 GRAM, TID
     Route: 048
  3. BUFFERIN [ACETYLSALICYLIC ACID;ALUMINIUM GLYCINATE;MAGNESIUM CARBONATE [Concomitant]
     Active Substance: ASPIRIN\DIHYDROXYALUMINUM AMINOACETATE ANHYDROUS\MAGNESIUM CARBONATE
     Indication: DISEASE COMPLICATION
     Dosage: 81 MILLIGRAM, QD
     Route: 048
  4. FEBURIC [Concomitant]
     Active Substance: FEBUXOSTAT
     Indication: DISEASE COMPLICATION
     Dosage: 20 MILLIGRAM, QD
     Route: 048
  5. PACLITAXEL ALBUMIN [Suspect]
     Active Substance: PACLITAXEL
     Indication: LUNG SQUAMOUS CELL CARCINOMA STAGE IV
     Dosage: 170 MILLIGRAM, QD
     Route: 042
     Dates: start: 20210604, end: 20210604
  6. NIFEDIPINE. [Concomitant]
     Active Substance: NIFEDIPINE
     Indication: DISEASE COMPLICATION
     Dosage: 20 MILLIGRAM, BID
     Route: 048
  7. ALOXI [Concomitant]
     Active Substance: PALONOSETRON HYDROCHLORIDE
     Indication: CHEMOTHERAPY SIDE EFFECT PROPHYLAXIS
     Dosage: 0.75 MILLIGRAM, QD
     Route: 041
     Dates: start: 20210604, end: 20210604
  8. CARBOPLATIN. [Suspect]
     Active Substance: CARBOPLATIN
     Indication: LUNG SQUAMOUS CELL CARCINOMA STAGE IV
     Dosage: 400 MILLIGRAM/DOSE
     Route: 051
     Dates: start: 20210604, end: 20210604
  9. LAFUTIDINE [Concomitant]
     Active Substance: LAFUTIDINE
     Indication: DISEASE COMPLICATION
     Dosage: 10 MILLIGRAM, BID
     Route: 048
     Dates: end: 20210610
  10. DEXART [Concomitant]
     Active Substance: DEXAMETHASONE SODIUM PHOSPHATE
     Indication: CHEMOTHERAPY SIDE EFFECT PROPHYLAXIS
     Dosage: 0.6 MILLIGRAM, QD
     Route: 041
     Dates: start: 20210604, end: 20210604
  11. KEYTRUDA [Suspect]
     Active Substance: PEMBROLIZUMAB
     Indication: LUNG SQUAMOUS CELL CARCINOMA STAGE IV
     Dosage: 200 MILLIGRAM, Q3W
     Route: 041
     Dates: start: 20210604, end: 20210604
  12. TOVIAZ [Concomitant]
     Active Substance: FESOTERODINE FUMARATE
     Indication: DISEASE COMPLICATION
     Dosage: 4 MILLIGRAM, QD
     Route: 048
  13. PRAVASTATIN SODIUM. [Concomitant]
     Active Substance: PRAVASTATIN SODIUM
     Indication: DISEASE COMPLICATION
     Dosage: 10 MILLIGRAM, QD
     Route: 048
  14. RHYTHMY [Concomitant]
     Active Substance: RILMAZAFONE HYDROCHLORIDE
     Indication: DISEASE COMPLICATION
     Dosage: 1 MILLIGRAM, QD
     Route: 048
  15. MAGMITT [Concomitant]
     Active Substance: MAGNESIUM OXIDE
     Indication: DISEASE COMPLICATION
     Dosage: 330 MILLIGRAM, BID
     Route: 048

REACTIONS (4)
  - White blood cell count decreased [Unknown]
  - Pneumonia bacterial [Unknown]
  - Malignant neoplasm progression [Unknown]
  - Pneumonia [Recovering/Resolving]

NARRATIVE: CASE EVENT DATE: 20210605
